FAERS Safety Report 17209007 (Version 1)
Quarter: 2019Q4

REPORT INFORMATION
  Report Type: Spontaneous
  Country: TR (occurrence: TR)
  Receive Date: 20191227
  Receipt Date: 20191227
  Transmission Date: 20200122
  Serious: Yes (Death)
  Sender: FDA-Public Use
  Company Number: NVSC2019TR080383

PATIENT

DRUGS (1)
  1. QUETIAPINE. [Suspect]
     Active Substance: QUETIAPINE
     Indication: SUICIDE ATTEMPT
     Dosage: 38.9 UG/ML
     Route: 065

REACTIONS (2)
  - Intentional overdose [Fatal]
  - Completed suicide [Fatal]
